FAERS Safety Report 6037852-8 (Version None)
Quarter: 2009Q1

REPORT INFORMATION
  Report Type: 
  Country: None (occurrence: None)
  Receive Date: 20090114
  Receipt Date: 20090114
  Transmission Date: 20090719
  Serious: Yes (Hospitalization, Disabling, Other)
  Sender: FDA-Public Use
  Company Number: None

PATIENT
  Age: 45 Year
  Sex: Female
  Weight: 56.6996 kg

DRUGS (1)
  1. LEVAQUIN [Suspect]
     Indication: NEPHROLITHIASIS
     Dosage: WAS SUPPOSE TO BE 500 MG ONE A DAY TARGET FILLED IT WITH 750MG
     Dates: start: 20080317, end: 20080323

REACTIONS (11)
  - ANXIETY [None]
  - DIZZINESS [None]
  - DRUG DISPENSING ERROR [None]
  - GRIP STRENGTH DECREASED [None]
  - HYPOAESTHESIA [None]
  - IMPAIRED DRIVING ABILITY [None]
  - INCORRECT DOSE ADMINISTERED [None]
  - MEDICATION ERROR [None]
  - MUSCULAR WEAKNESS [None]
  - TENDON DISORDER [None]
  - VISION BLURRED [None]
